FAERS Safety Report 19750849 (Version 1)
Quarter: 2021Q3

REPORT INFORMATION
  Report Type: Spontaneous
  Country: SE (occurrence: SE)
  Receive Date: 20210826
  Receipt Date: 20210826
  Transmission Date: 20211014
  Serious: Yes (Hospitalization)
  Sender: FDA-Public Use
  Company Number: SE-PFIZER INC-202101052127

PATIENT
  Age: 76 Year
  Sex: Female

DRUGS (13)
  1. CILAXORAL [Concomitant]
     Active Substance: SODIUM PICOSULFATE
     Dosage: 7.5 MG/ML
  2. MIRTAZAPIN ACTAVIS [Concomitant]
     Active Substance: MIRTAZAPINE
     Dosage: UNK
  3. KALCIPOS?D [Concomitant]
     Active Substance: CALCIUM CARBONATE\CHOLECALCIFEROL
     Dosage: 500 MG
  4. METADON ABCUR [Concomitant]
     Active Substance: METHADONE HYDROCHLORIDE
     Dosage: UNK
  5. LETROZOL MYLAN [Concomitant]
     Active Substance: LETROZOLE
     Dosage: 2.5 MG
  6. MORFIN ABCUR [Concomitant]
     Dosage: 10 MG/ML
  7. METFORMIN ORIFARM [Concomitant]
     Dosage: UNK
  8. TRAJENTA [Concomitant]
     Active Substance: LINAGLIPTIN
     Dosage: 5 MG
  9. IBRANCE [Suspect]
     Active Substance: PALBOCICLIB
     Indication: BREAST CANCER
     Dosage: 125 MG
     Dates: end: 20210717
  10. PREGABALIN SANDOZ [Concomitant]
     Active Substance: PREGABALIN
     Dosage: UNK
  11. ESOMEPRAZOL PENSA [Concomitant]
     Dosage: UNK
  12. FORLAX [MACROGOL 4000] [Concomitant]
     Active Substance: POLYETHYLENE GLYCOL 4000
     Dosage: 10 MG
  13. XGEVA [Concomitant]
     Active Substance: DENOSUMAB
     Dosage: 120 MG

REACTIONS (1)
  - Enteritis [Unknown]

NARRATIVE: CASE EVENT DATE: 20210715
